FAERS Safety Report 5256350-2 (Version None)
Quarter: 2007Q1

REPORT INFORMATION
  Report Type: 
  Country: None (occurrence: None)
  Receive Date: 20070306
  Receipt Date: 20070222
  Transmission Date: 20070707
  Serious: Yes (Hospitalization)
  Sender: FDA-Public Use
  Company Number: US-BAYER-200710615BWH

PATIENT
  Age: 70 Year
  Sex: Male
  Weight: 79 kg

DRUGS (5)
  1. SORAFENIB [Suspect]
     Indication: MESOTHELIOMA
     Dosage: TOTAL DAILY DOSE: 400 MG  UNIT DOSE: 200 MG
     Route: 048
     Dates: start: 20060817, end: 20070212
  2. ATENOLOL [Concomitant]
     Indication: CORONARY ARTERY DISEASE
     Route: 048
  3. FENTANYL [Concomitant]
     Indication: PAIN
     Route: 062
  4. OXYCODONE HCL [Concomitant]
     Indication: PAIN
     Route: 048
     Dates: start: 20060814
  5. MEGACE [Concomitant]
     Indication: ANOREXIA
     Route: 048
     Dates: start: 20061211

REACTIONS (4)
  - BACK PAIN [None]
  - CEREBRAL ISCHAEMIA [None]
  - DIPLOPIA [None]
  - PARALYSIS [None]
